FAERS Safety Report 19377742 (Version 8)
Quarter: 2022Q2

REPORT INFORMATION
  Report Type: Report from Study
  Country: CA (occurrence: CA)
  Receive Date: 20210604
  Receipt Date: 20220418
  Transmission Date: 20220721
  Serious: Yes (Death, Hospitalization, Other)
  Sender: FDA-Public Use
  Company Number: CA-OTSUKA-2021_018469

PATIENT
  Sex: Female

DRUGS (2)
  1. CEDAZURIDINE\DECITABINE [Suspect]
     Active Substance: CEDAZURIDINE\DECITABINE
     Indication: Myelodysplastic syndrome
     Dosage: UNK, (35 MG DECITABINE AND 100 MG CEDAZURIDINE) FOR 5 DAYS
     Route: 048
     Dates: start: 20210308
  2. CEDAZURIDINE\DECITABINE [Suspect]
     Active Substance: CEDAZURIDINE\DECITABINE
     Dosage: UNK, (35 MG DECITABINE AND 100 MG CEDAZURIDINE) 3 DAYS (DOWN TO 3 PILL)
     Route: 048

REACTIONS (13)
  - Death [Fatal]
  - Pleural effusion [Unknown]
  - Feeling abnormal [Unknown]
  - Blood product transfusion dependent [Unknown]
  - Blood glucose increased [Not Recovered/Not Resolved]
  - General physical health deterioration [Unknown]
  - Eastern Cooperative Oncology Group performance status worsened [Unknown]
  - Swelling face [Recovering/Resolving]
  - Peripheral swelling [Recovering/Resolving]
  - Asthenia [Unknown]
  - White blood cell count decreased [Unknown]
  - Drug ineffective [Unknown]
  - Therapy interrupted [Unknown]
